FAERS Safety Report 6041785-0 (Version None)
Quarter: 2009Q1

REPORT INFORMATION
  Report Type: 
  Country: None (occurrence: None)
  Receive Date: 20090116
  Receipt Date: 20090112
  Transmission Date: 20090719
  Serious: Yes (Death, Hospitalization)
  Sender: FDA-Public Use
  Company Number: DE-CELGENEUS-062-C5013-08121272

PATIENT
  Sex: Male
  Weight: 73.5 kg

DRUGS (2)
  1. REVLIMID [Suspect]
     Indication: MULTIPLE MYELOMA
     Route: 048
     Dates: start: 20070713, end: 20071124
  2. DEXAMETHASONE TAB [Suspect]
     Indication: MULTIPLE MYELOMA
     Route: 065
     Dates: start: 20070713, end: 20071124

REACTIONS (3)
  - CENTRAL NERVOUS SYSTEM LESION [None]
  - DYSARTHRIA [None]
  - WALKING DISABILITY [None]
